FAERS Safety Report 13747100 (Version 3)
Quarter: 2018Q1

REPORT INFORMATION
  Report Type: Spontaneous
  Country: US (occurrence: US)
  Receive Date: 20170712
  Receipt Date: 20180321
  Transmission Date: 20180508
  Serious: Yes (Death, Hospitalization)
  Sender: FDA-Public Use
  Company Number: US-JNJFOC-20170707679

PATIENT
  Age: 42 Year
  Sex: Male

DRUGS (1)
  1. INVOKANA [Suspect]
     Active Substance: CANAGLIFLOZIN
     Indication: TYPE 2 DIABETES MELLITUS
     Route: 048
     Dates: start: 20140611, end: 20140904

REACTIONS (5)
  - Chronic respiratory failure [Fatal]
  - Diabetic ketoacidosis [Unknown]
  - Toxic encephalopathy [Unknown]
  - Pancreatitis necrotising [Fatal]
  - Renal failure [Fatal]

NARRATIVE: CASE EVENT DATE: 201407
